FAERS Safety Report 8402320-2 (Version None)
Quarter: 2012Q2

REPORT INFORMATION
  Report Type: 
  Country: None (occurrence: None)
  Receive Date: 20120601
  Receipt Date: 20120529
  Transmission Date: 20120825
  Serious: Yes (Hospitalization)
  Sender: FDA-Public Use
  Company Number: US-ROXANE LABORATORIES, INC.-2012-RO-01317RO

PATIENT
  Sex: Female

DRUGS (1)
  1. MORPHINE [Suspect]
     Route: 048

REACTIONS (3)
  - MENTAL STATUS CHANGES [None]
  - FALL [None]
  - HEAD INJURY [None]
